FAERS Safety Report 12691474 (Version 2)
Quarter: 2016Q4

REPORT INFORMATION
  Report Type: Spontaneous
  Country: DE (occurrence: DE)
  Receive Date: 20160826
  Receipt Date: 20161019
  Transmission Date: 20170207
  Serious: Yes (Hospitalization, Other)
  Sender: FDA-Public Use
  Company Number: DE-SA-2016SA154452

PATIENT
  Age: 95 Year
  Sex: Female

DRUGS (19)
  1. ZOLPI-LICH [Suspect]
     Active Substance: ZOLPIDEM TARTRATE
     Indication: SLEEP DISORDER
     Route: 048
  2. BUPRENORPHINE. [Suspect]
     Active Substance: BUPRENORPHINE
     Route: 065
     Dates: start: 201401
  3. TARGIN [Concomitant]
     Active Substance: NALOXONE HYDROCHLORIDE\OXYCODONE HYDROCHLORIDE
     Route: 065
  4. GINGIUM [Concomitant]
     Active Substance: GINKGO BILOBA LEAF EXTRACT
     Route: 065
     Dates: end: 201512
  5. ZOLPI-LICH [Suspect]
     Active Substance: ZOLPIDEM TARTRATE
     Indication: SLEEP DISORDER
     Route: 048
     Dates: start: 201608, end: 20160819
  6. MAGNESIUM [Concomitant]
     Active Substance: MAGNESIUM
     Route: 065
  7. MOVICOL [Concomitant]
     Active Substance: POLYETHYLENE GLYCOL 3350\POTASSIUM CHLORIDE\SODIUM BICARBONATE\SODIUM CHLORIDE
     Route: 065
     Dates: end: 201512
  8. DULCOLAX NOS [Concomitant]
     Active Substance: BISACODYL OR DOCUSATE SODIUM
     Route: 065
     Dates: end: 201512
  9. NOVAMIN [Concomitant]
     Active Substance: PROCHLORPERAZINE MALEATE
     Route: 065
     Dates: end: 201512
  10. NOVAMINSULFON [Concomitant]
     Active Substance: METAMIZOLE
     Route: 065
  11. BUPRENORPHINE. [Suspect]
     Active Substance: BUPRENORPHINE
     Dosage: 4-6MG
     Route: 065
     Dates: start: 201506
  12. BALDRIAN [Concomitant]
     Route: 065
     Dates: end: 201512
  13. CETIRIZINE [Concomitant]
     Active Substance: CETIRIZINE HYDROCHLORIDE
     Route: 065
     Dates: end: 201512
  14. OMEGA 3 [Concomitant]
     Active Substance: OMEGA-3 FATTY ACIDS
     Route: 065
     Dates: end: 201512
  15. BUPRENORPHINE. [Suspect]
     Active Substance: BUPRENORPHINE
     Route: 065
     Dates: start: 201403, end: 201412
  16. BUPRENORPHINE. [Suspect]
     Active Substance: BUPRENORPHINE
     Route: 065
     Dates: start: 201501
  17. PANTOZOL [Concomitant]
     Active Substance: PANTOPRAZOLE SODIUM
     Route: 065
  18. ZOLPI-LICH [Suspect]
     Active Substance: ZOLPIDEM TARTRATE
     Indication: SLEEP DISORDER
     Dosage: TAKEN FROM: NOV/DEC-2015
     Route: 048
     Dates: start: 2015
  19. BUPRENORPHINE. [Suspect]
     Active Substance: BUPRENORPHINE
     Dosage: 8-10 MG DAILY
     Route: 065
     Dates: start: 201508

REACTIONS (22)
  - Therapeutic response decreased [Unknown]
  - Impaired self-care [Recovered/Resolved]
  - Iron deficiency [Recovering/Resolving]
  - Vitamin B12 deficiency [Unknown]
  - Pain [Recovering/Resolving]
  - Overdose [Unknown]
  - Essential hypertension [Recovering/Resolving]
  - Motor dysfunction [Unknown]
  - Atrial fibrillation [Recovering/Resolving]
  - Drug interaction [Recovered/Resolved]
  - Tachycardia [Recovering/Resolving]
  - Abdominal pain [Recovering/Resolving]
  - Depression [Unknown]
  - Dizziness [Recovered/Resolved]
  - Femoral neck fracture [Recovered/Resolved]
  - Muscular weakness [Recovering/Resolving]
  - Haemorrhagic anaemia [Recovering/Resolving]
  - Delirium [Recovering/Resolving]
  - Drug ineffective [Unknown]
  - Sleep disorder [Unknown]
  - Cognitive disorder [Unknown]
  - Fall [Recovered/Resolved]

NARRATIVE: CASE EVENT DATE: 2015
